FAERS Safety Report 15006833 (Version 1)
Quarter: 2018Q2

REPORT INFORMATION
  Report Type: Spontaneous
  Country: US (occurrence: US)
  Receive Date: 20180521
  Receipt Date: 20180521
  Transmission Date: 20180711
  Serious: No
  Sender: FDA-Public Use
  Company Number: None

PATIENT
  Age: 58 Year
  Sex: Male

DRUGS (19)
  1. SENNA [Concomitant]
     Active Substance: SENNA LEAF\SENNOSIDES\SENNOSIDES A AND B
  2. HEPARIN [Suspect]
     Active Substance: HEPARIN SODIUM
     Indication: PROPHYLAXIS
     Route: 042
     Dates: start: 20180323, end: 20180402
  3. METOPROLOL. [Concomitant]
     Active Substance: METOPROLOL
  4. MORPHINE [Concomitant]
     Active Substance: MORPHINE
  5. AMIODARONE [Concomitant]
     Active Substance: AMIODARONE
  6. AMPICILLIN/SULBACTAM [Concomitant]
     Active Substance: AMPICILLIN SODIUM\SULBACTAM SODIUM
  7. ENOXAPARIN [Suspect]
     Active Substance: ENOXAPARIN
     Route: 058
  8. PANTOPRAZOLE [Suspect]
     Active Substance: PANTOPRAZOLE
  9. ACETAMINOPHEN. [Concomitant]
     Active Substance: ACETAMINOPHEN
  10. IPRATROPIUM [Concomitant]
     Active Substance: IPRATROPIUM
  11. POLYETHYLENE [Concomitant]
     Active Substance: HIGH DENSITY POLYETHYLENE
  12. POLYETHYLENE GLYCOL 3350. [Concomitant]
     Active Substance: POLYETHYLENE GLYCOL 3350
  13. INSULIN REGULAR [Concomitant]
     Active Substance: INSULIN NOS
  14. OXYCODONE [Concomitant]
     Active Substance: OXYCODONE
  15. LORAZAPAM [Concomitant]
     Active Substance: LORAZEPAM
  16. MORPHINE [Concomitant]
     Active Substance: MORPHINE
  17. ALBUTEROL. [Concomitant]
     Active Substance: ALBUTEROL
  18. FLUCONAZOLE. [Concomitant]
     Active Substance: FLUCONAZOLE
  19. HYDROMORPHONE [Concomitant]
     Active Substance: HYDROMORPHONE

REACTIONS (1)
  - Platelet count decreased [None]

NARRATIVE: CASE EVENT DATE: 20180402
